FAERS Safety Report 24531445 (Version 4)
Quarter: 2024Q4

REPORT INFORMATION
  Report Type: Spontaneous
  Country: BR (occurrence: BR)
  Receive Date: 20241022
  Receipt Date: 20241124
  Transmission Date: 20250115
  Serious: No
  Sender: AMGEN
  Company Number: BR-AMGEN-BRASP2024197981

PATIENT
  Sex: Female

DRUGS (6)
  1. PEGFILGRASTIM [Suspect]
     Active Substance: PEGFILGRASTIM
     Indication: Breast cancer
     Dosage: UNK, 10MG/ML-0.64ML
     Route: 058
  2. PEGFILGRASTIM [Suspect]
     Active Substance: PEGFILGRASTIM
     Dosage: UNK, 10MG/ML-0.64ML
     Route: 058
  3. TRASTUZUMAB [Concomitant]
     Active Substance: TRASTUZUMAB
     Indication: Breast cancer
     Dosage: UNK
     Route: 065
  4. PERTUZUMAB [Concomitant]
     Active Substance: PERTUZUMAB
     Indication: Breast cancer
  5. CARBOPLATIN [Concomitant]
     Active Substance: CARBOPLATIN
     Indication: Breast cancer
  6. DOCETAXEL [Concomitant]
     Active Substance: DOCETAXEL
     Indication: Breast cancer

REACTIONS (3)
  - Device adhesion issue [Unknown]
  - Drug dose omission by device [Unknown]
  - Device placement issue [Unknown]

NARRATIVE: CASE EVENT DATE: 20241001
